FAERS Safety Report 9131414 (Version 2)
Quarter: 2013Q2

REPORT INFORMATION
  Report Type: Spontaneous
  Country: CH (occurrence: CH)
  Receive Date: 20130301
  Receipt Date: 20130423
  Transmission Date: 20140414
  Serious: Yes (Hospitalization)
  Sender: FDA-Public Use
  Company Number: CH-ABBOTT-13P-151-1054523-00

PATIENT
  Age: 46 Year
  Sex: Male

DRUGS (4)
  1. HUMIRA [Suspect]
     Indication: PSORIATIC ARTHROPATHY
     Route: 058
     Dates: start: 20100608, end: 201204
  2. HUMIRA [Suspect]
     Indication: ARTHRITIS ENTEROPATHIC
     Route: 058
     Dates: start: 201207
  3. METHOTREXATE [Concomitant]
     Indication: PSORIATIC ARTHROPATHY
  4. METHOTREXATE [Concomitant]
     Indication: ARTHRITIS ENTEROPATHIC

REACTIONS (6)
  - Weight decreased [Not Recovered/Not Resolved]
  - Lung disorder [Not Recovered/Not Resolved]
  - Lymphoma [Not Recovered/Not Resolved]
  - Sarcoidosis [Not Recovered/Not Resolved]
  - Inflammation [Unknown]
  - Pain [Unknown]
